FAERS Safety Report 9778433 (Version 2)
Quarter: 2014Q1

REPORT INFORMATION
  Report Type: Spontaneous
  Country: US (occurrence: US)
  Receive Date: 20131223
  Receipt Date: 20140110
  Transmission Date: 20141002
  Serious: Yes (Death, Hospitalization, Other)
  Sender: FDA-Public Use
  Company Number: US-INCYTE CORPORATION-2013IN003067

PATIENT
  Sex: Male
  Weight: 107.66 kg

DRUGS (3)
  1. JAKAFI [Suspect]
     Dosage: 10 MG, BID
     Route: 048
  2. JAKAFI [Suspect]
     Dosage: 10 MG, BID
     Route: 048
     Dates: start: 2013
  3. HYDREA [Suspect]
     Dosage: 500 MG, QOD
     Route: 048
     Dates: start: 2013

REACTIONS (5)
  - Disease progression [Fatal]
  - Disseminated intravascular coagulation [Unknown]
  - Renal failure [Recovering/Resolving]
  - Red blood cell count decreased [Unknown]
  - Platelet count decreased [Unknown]
